FAERS Safety Report 25377696 (Version 1)
Quarter: 2025Q2

REPORT INFORMATION
  Report Type: Report from Study
  Country: CN (occurrence: CN)
  Receive Date: 20250530
  Receipt Date: 20250530
  Transmission Date: 20250717
  Serious: Yes (Other)
  Sender: AUROBINDO
  Company Number: CN-AUROBINDO-AUR-APL-2025-010667

PATIENT
  Age: 10 Year
  Sex: Female

DRUGS (3)
  1. EVOMELA [Suspect]
     Active Substance: MELPHALAN HYDROCHLORIDE
     Indication: Autologous haematopoietic stem cell transplant
     Dosage: 60 MG/M2, ONCE A DAY (60MG/M2, QD, 3 DAYS)
     Route: 037
  2. EVOMELA [Suspect]
     Active Substance: MELPHALAN HYDROCHLORIDE
     Indication: Medulloblastoma
  3. CYCLOPHOSPHAMIDE [Concomitant]
     Active Substance: CYCLOPHOSPHAMIDE
     Indication: Prophylaxis against transplant rejection
     Dosage: 1500 MG/M2, ONCE A DAY (1500MG/M2, QD, 3 DAYS)
     Route: 065

REACTIONS (2)
  - Therapeutic product effect incomplete [Unknown]
  - Oral infection [Recovering/Resolving]
